FAERS Safety Report 7626341-2 (Version None)
Quarter: 2011Q3

REPORT INFORMATION
  Report Type: 
  Country: None (occurrence: None)
  Receive Date: 20110721
  Receipt Date: 20110718
  Transmission Date: 20111222
  Serious: Yes (Other)
  Sender: FDA-Public Use
  Company Number: FR-PFIZER INC-2011164102

PATIENT
  Age: 63 Year
  Sex: Male

DRUGS (1)
  1. FLUCONAZOLE [Suspect]
     Dosage: UNK

REACTIONS (2)
  - TOXIC SKIN ERUPTION [None]
  - DERMATITIS BULLOUS [None]
